FAERS Safety Report 5507259-8 (Version None)
Quarter: 2007Q4

REPORT INFORMATION
  Report Type: 
  Country: None (occurrence: None)
  Receive Date: 20071106
  Receipt Date: 20071029
  Transmission Date: 20080405
  Serious: Yes (Hospitalization)
  Sender: FDA-Public Use
  Company Number: PHNU2007DE03615

PATIENT
  Age: 59 Year
  Sex: Male

DRUGS (2)
  1. ZOMETA [Suspect]
     Indication: BRONCHIAL CARCINOMA
     Dosage: 4 MG, ONCE/SINGLE
     Dates: start: 20070801, end: 20070801
  2. ZOMETA [Suspect]
     Dosage: 4 MG, ONCE/SINGLE
     Dates: start: 20071024, end: 20071024

REACTIONS (4)
  - ERYTHEMA [None]
  - FEELING HOT [None]
  - INFLAMMATION [None]
  - SWELLING [None]
